FAERS Safety Report 14752382 (Version 1)
Quarter: 2018Q2

REPORT INFORMATION
  Report Type: Spontaneous
  Country: FR (occurrence: FR)
  Receive Date: 20180412
  Receipt Date: 20180412
  Transmission Date: 20180711
  Serious: Yes (Other)
  Sender: FDA-Public Use
  Company Number: FR-TEVA-2018-FR-879816

PATIENT
  Sex: Female

DRUGS (2)
  1. COPAXONE [Suspect]
     Active Substance: GLATIRAMER ACETATE
     Indication: MULTIPLE SCLEROSIS
     Dosage: 20 MILLIGRAM/MILLILITERS DAILY; COPAXONE: 20 MG/ML, STARTED FOR 10 YEARS
     Route: 058
  2. BIAFINE [Concomitant]
     Active Substance: TROLAMINE

REACTIONS (1)
  - Intraductal papillary mucinous neoplasm [Unknown]
